FAERS Safety Report 5114860-2 (Version None)
Quarter: 2006Q3

REPORT INFORMATION
  Report Type: 
  Country: None (occurrence: None)
  Receive Date: 20060926
  Receipt Date: 20060207
  Transmission Date: 20061208
  Serious: Yes (Hospitalization, Other)
  Sender: FDA-Public Use
  Company Number: DE-BAYER-200610168BVD

PATIENT
  Age: 57 Year
  Sex: Male

DRUGS (2)
  1. TRASYLOL [Suspect]
     Indication: CORONARY ARTERY BYPASS
     Route: 065
     Dates: start: 19960506, end: 19960506
  2. PLAVIX [Concomitant]

REACTIONS (4)
  - BALANCE DISORDER [None]
  - BRAIN STEM ISCHAEMIA [None]
  - MONOPLEGIA [None]
  - REVERSIBLE ISCHAEMIC NEUROLOGICAL DEFICIT [None]
